FAERS Safety Report 7318538-6 (Version None)
Quarter: 2011Q1

REPORT INFORMATION
  Report Type: 
  Country: None (occurrence: None)
  Receive Date: 20110228
  Receipt Date: 20110218
  Transmission Date: 20110831
  Serious: No
  Sender: FDA-Public Use
  Company Number: US-PFIZER INC-US-WYE-H17763510

PATIENT
  Age: 80 Year
  Sex: Female
  Weight: 61.678 kg

DRUGS (3)
  1. ADVIL PM [Suspect]
     Indication: INSOMNIA
     Dosage: 2 CAPSULES, ONCE
     Route: 048
     Dates: start: 20100901, end: 20100901
  2. LIPITOR [Concomitant]
  3. DIOVAN [Concomitant]

REACTIONS (1)
  - DRUG EFFECT DECREASED [None]
